FAERS Safety Report 15689980 (Version 1)
Quarter: 2018Q4

REPORT INFORMATION
  Report Type: Spontaneous
  Country: JP (occurrence: JP)
  Receive Date: 20181205
  Receipt Date: 20181205
  Transmission Date: 20190205
  Serious: Yes (Other)
  Sender: FDA-Public Use
  Company Number: JP-PFIZER INC-2018492598

PATIENT

DRUGS (1)
  1. LYRICA [Suspect]
     Active Substance: PREGABALIN
     Dosage: 50 MG, UNK
     Route: 048
     Dates: start: 201806

REACTIONS (4)
  - Dizziness [Not Recovered/Not Resolved]
  - Restlessness [Unknown]
  - Feeling abnormal [Not Recovered/Not Resolved]
  - Meniere^s disease [Unknown]

NARRATIVE: CASE EVENT DATE: 201811
